FAERS Safety Report 8533716-6 (Version None)
Quarter: 2012Q3

REPORT INFORMATION
  Report Type: 
  Country: None (occurrence: None)
  Receive Date: 20120711
  Receipt Date: 20120626
  Transmission Date: 20120928
  Serious: Yes (Hospitalization, Disabling, Other)
  Sender: FDA-Public Use
  Company Number: JPI-P-020822

PATIENT
  Age: 60 Year
  Sex: Female
  Weight: 56.6996 kg

DRUGS (25)
  1. ARTIFICAL TEARS [Concomitant]
  2. HYDROCHLOROTHIAZIDE [Concomitant]
  3. SIMVASTATIN [Concomitant]
  4. CYCLOSPORINE (EYE DROPS) [Concomitant]
  5. ACETYLSALICYLIC ACID SRT [Concomitant]
  6. LACTOBACILLUS RHAMNOSUS [Concomitant]
  7. ZOLPIDEM TARTRATE [Concomitant]
  8. DIVALPROEX SODIUM [Suspect]
     Indication: AGORAPHOBIA
     Dates: start: 20120519
  9. RAMIPRIL [Concomitant]
  10. DESVENLAFAXINE SUCCINATE [Concomitant]
  11. ASCORBIC ACID [Concomitant]
  12. VITAMIN D [Concomitant]
  13. NIACIN [Concomitant]
  14. XYREM [Suspect]
     Indication: SLEEP DISORDER
     Dosage: 6 GM (3 GM, 2 IN 1 D), ORAL; 9 GM (4.5 GM, 2 IN 1 D), ORAL
     Route: 048
     Dates: start: 20110831, end: 20120401
  15. XYREM [Suspect]
     Indication: INSOMNIA
     Dosage: 6 GM (3 GM, 2 IN 1 D), ORAL; 9 GM (4.5 GM, 2 IN 1 D), ORAL
     Route: 048
     Dates: start: 20110831, end: 20120401
  16. XYREM [Suspect]
     Indication: SLEEP DISORDER
     Dosage: 6 GM (3 GM, 2 IN 1 D), ORAL; 9 GM (4.5 GM, 2 IN 1 D), ORAL
     Route: 048
     Dates: start: 20110726
  17. XYREM [Suspect]
     Indication: INSOMNIA
     Dosage: 6 GM (3 GM, 2 IN 1 D), ORAL; 9 GM (4.5 GM, 2 IN 1 D), ORAL
     Route: 048
     Dates: start: 20110726
  18. PANTOPRAZOLE [Concomitant]
  19. ASPIRIN [Concomitant]
  20. AYR SINUS RINSE KIT [Concomitant]
  21. VITAMIN B COMPLEX CAP [Concomitant]
  22. CLONAZEPAM [Concomitant]
  23. GABAPENTIN [Concomitant]
  24. FISH OIL [Concomitant]
  25. INDERAL [Concomitant]

REACTIONS (16)
  - DEPRESSION [None]
  - PALPITATIONS [None]
  - BLOOD CHOLESTEROL INCREASED [None]
  - BLOOD GLUCOSE INCREASED [None]
  - WEIGHT INCREASED [None]
  - AGORAPHOBIA [None]
  - HYPOPHAGIA [None]
  - SELF INJURIOUS BEHAVIOUR [None]
  - LIVER DISORDER [None]
  - HEAD INJURY [None]
  - SUICIDAL IDEATION [None]
  - TREMOR [None]
  - HYPERVENTILATION [None]
  - PANIC DISORDER [None]
  - BLOOD PRESSURE INCREASED [None]
  - ACTIVITIES OF DAILY LIVING IMPAIRED [None]
